FAERS Safety Report 15744065 (Version 1)
Quarter: 2018Q4

REPORT INFORMATION
  Report Type: Spontaneous
  Country: JP (occurrence: JP)
  Receive Date: 20181220
  Receipt Date: 20181220
  Transmission Date: 20190205
  Serious: Yes (Other)
  Sender: FDA-Public Use
  Company Number: JP-ELI_LILLY_AND_COMPANY-JP201807006077

PATIENT
  Age: 3 Month
  Sex: Male

DRUGS (2)
  1. OXYGEN. [Concomitant]
     Active Substance: OXYGEN
     Indication: BRONCHOPULMONARY DYSPLASIA
     Dosage: UNK
     Route: 055
     Dates: start: 20171002
  2. ADCIRCA [Suspect]
     Active Substance: TADALAFIL
     Indication: PULMONARY HYPERTENSION
     Dosage: 0.5 MG, DAILY
     Route: 048
     Dates: start: 20180126, end: 20180129

REACTIONS (3)
  - Wrong technique in product usage process [Recovered/Resolved]
  - Oedema [Recovering/Resolving]
  - Tachycardia [Recovering/Resolving]

NARRATIVE: CASE EVENT DATE: 20180126
